FAERS Safety Report 5104251-2 (Version None)
Quarter: 2006Q3

REPORT INFORMATION
  Report Type: 
  Country: None (occurrence: None)
  Receive Date: 20060911
  Receipt Date: 20060828
  Transmission Date: 20061208
  Serious: Yes (Hospitalization)
  Sender: FDA-Public Use
  Company Number: 2006VX000946

PATIENT
  Age: 24 Year
  Sex: Male
  Weight: 57.5 kg

DRUGS (3)
  1. INTERFERON ALFACON-1 [Suspect]
     Indication: HEPATITIS C
     Dosage: 9 UG; QD; SC
     Route: 058
     Dates: start: 20050722, end: 20060612
  2. REBETOL [Concomitant]
  3. ZOPICLONE [Concomitant]

REACTIONS (2)
  - ABSCESS LIMB [None]
  - CELLULITIS [None]
